FAERS Safety Report 4451012-3 (Version None)
Quarter: 2004Q3

REPORT INFORMATION
  Report Type: 
  Country: None (occurrence: None)
  Receive Date: 20040916
  Receipt Date: 20040707
  Transmission Date: 20050211
  Serious: No
  Sender: FDA-Public Use
  Company Number: US-BRISTOL-MYERS SQUIBB COMPANY-12633541

PATIENT
  Age: 65 Year
  Sex: Male
  Weight: 76 kg

DRUGS (1)
  1. STADOL [Suspect]
     Indication: ANALGESIC EFFECT
     Dosage: THERAPY FROM: ^THE LATE 70'S OR EARLY 80'S^
     Route: 030

REACTIONS (1)
  - SYNCOPE [None]
